FAERS Safety Report 6565243-X (Version None)
Quarter: 2010Q1

REPORT INFORMATION
  Report Type: 
  Country: None (occurrence: None)
  Receive Date: 20100201
  Receipt Date: 20100122
  Transmission Date: 20100710
  Serious: Yes (Other)
  Sender: FDA-Public Use
  Company Number: TW-ROCHE-672441

PATIENT
  Sex: Male
  Weight: 70 kg

DRUGS (7)
  1. INTERFERON ALFA [Suspect]
     Dosage: DOSE: 9 MU
     Route: 058
     Dates: start: 20081113, end: 20091128
  2. INTERFERON ALFA [Suspect]
     Dosage: DOSE: 9 MU
     Route: 058
     Dates: end: 20091215
  3. BEVACIZUMAB [Suspect]
     Route: 042
     Dates: start: 20081113, end: 20091128
  4. BEVACIZUMAB [Suspect]
     Route: 042
     Dates: end: 20091215
  5. ACETAMINOPHEN [Concomitant]
     Indication: PROPHYLAXIS
     Dates: start: 20091113
  6. KOSONIN SYRUP [Concomitant]
     Indication: COUGH
     Dates: start: 20091217, end: 20091221
  7. AMLODIPINE [Concomitant]
     Indication: HYPERTENSION
     Dates: start: 20091203

REACTIONS (1)
  - HAEMOPTYSIS [None]
